FAERS Safety Report 14959005 (Version 2)
Quarter: 2018Q2

REPORT INFORMATION
  Report Type: Spontaneous
  Country: GB (occurrence: GB)
  Receive Date: 20180531
  Receipt Date: 20180629
  Transmission Date: 20180711
  Serious: Yes (Hospitalization, Other)
  Sender: FDA-Public Use
  Company Number: US-ENDO PHARMACEUTICALS INC-2018-039535

PATIENT
  Age: 64 Year
  Sex: Male

DRUGS (3)
  1. NAVIDREX K [Concomitant]
     Indication: HYPERTENSION
  2. SLOW TRASICOR [Concomitant]
     Indication: HYPERTENSION
  3. HYDRALAZINE HCL [Suspect]
     Active Substance: HYDRALAZINE HYDROCHLORIDE
     Indication: HYPERTENSION
     Dosage: 50 MG, TID FOR SEVERAL YEARS
     Route: 065

REACTIONS (2)
  - Cutaneous vasculitis [Unknown]
  - Vasculitis necrotising [Unknown]

NARRATIVE: CASE EVENT DATE: 198007
